FAERS Safety Report 11741760 (Version 2)
Quarter: 2015Q4

REPORT INFORMATION
  Report Type: Spontaneous
  Country: CA (occurrence: CA)
  Receive Date: 20151116
  Receipt Date: 20151116
  Transmission Date: 20160304
  Serious: Yes (Life-Threatening, Hospitalization, Other)
  Sender: FDA-Public Use
  Company Number: CA-ACTAVIS-2015-19013

PATIENT
  Age: 58 Year
  Sex: Male

DRUGS (3)
  1. CARBAMAZEPINE (UNKNOWN) [Suspect]
     Active Substance: CARBAMAZEPINE
     Indication: OVERDOSE
     Dosage: }14G TOTAL
     Route: 048
  2. LORAZEPAM (UNKNOWN) [Suspect]
     Active Substance: LORAZEPAM
     Indication: OVERDOSE
     Dosage: 60 G, TOTAL
     Route: 048
  3. ETHANOL [Concomitant]
     Active Substance: ALCOHOL
     Indication: PRODUCT USED FOR UNKNOWN INDICATION
     Dosage: UNK
     Route: 048

REACTIONS (4)
  - Anticonvulsant drug level above therapeutic [Recovered/Resolved]
  - Stupor [Recovered/Resolved]
  - Ileus [Recovered/Resolved]
  - Overdose [Recovered/Resolved]

NARRATIVE: CASE EVENT DATE: 20130715
